FAERS Safety Report 21548043 (Version 1)
Quarter: 2022Q4

REPORT INFORMATION
  Report Type: Spontaneous
  Country: US (occurrence: None)
  Receive Date: 20221102
  Receipt Date: 20221102
  Transmission Date: 20230113
  Serious: Yes (Other)
  Sender: FDA-Public Use
  Company Number: None

PATIENT
  Age: 43 Year
  Sex: Female
  Weight: 84.46 kg

DRUGS (1)
  1. ASENAPINE [Suspect]
     Active Substance: ASENAPINE
     Dosage: OTHER FREQUENCY : QHS; AT BEDTIME?OTHER ROUTE : SUB-LINGUAL;?
     Route: 060
     Dates: start: 20221010

REACTIONS (4)
  - Administration site erythema [None]
  - Administration site reaction [None]
  - Stomatitis [None]
  - Oral mucosal blistering [None]

NARRATIVE: CASE EVENT DATE: 20221101
